FAERS Safety Report 7589780-4 (Version None)
Quarter: 2011Q3

REPORT INFORMATION
  Report Type: 
  Country: None (occurrence: None)
  Receive Date: 20110705
  Receipt Date: 20110610
  Transmission Date: 20111222
  Serious: Yes (Other)
  Sender: FDA-Public Use
  Company Number: A0934102A

PATIENT
  Sex: Male

DRUGS (2)
  1. NONE [Concomitant]
  2. NICORETTE [Suspect]
     Route: 002

REACTIONS (1)
  - LIVER FUNCTION TEST ABNORMAL [None]
